FAERS Safety Report 6261501-7 (Version None)
Quarter: 2009Q3

REPORT INFORMATION
  Report Type: 
  Country: None (occurrence: None)
  Receive Date: 20090707
  Receipt Date: 20090707
  Transmission Date: 20100115
  Serious: Yes (Other)
  Sender: FDA-Public Use
  Company Number: None

PATIENT
  Age: 62 Year
  Sex: Male
  Weight: 105.2345 kg

DRUGS (1)
  1. LANTUS [Suspect]
     Indication: DIABETES MELLITUS
     Dosage: 42 UNITS ONCE A DAY SQ
     Route: 058
     Dates: start: 20090106, end: 20090702

REACTIONS (2)
  - SKIN CANCER [None]
  - SKIN GRAFT [None]
